FAERS Safety Report 8369063-5 (Version None)
Quarter: 2012Q2

REPORT INFORMATION
  Report Type: 
  Country: None (occurrence: None)
  Receive Date: 20120518
  Receipt Date: 20120514
  Transmission Date: 20120825
  Serious: Yes (Other)
  Sender: FDA-Public Use
  Company Number: US-BAYER-2012-047963

PATIENT
  Sex: Female

DRUGS (2)
  1. YAZ [Suspect]
     Dosage: UNK
     Dates: start: 20050901
  2. YASMIN [Suspect]
     Dosage: UNK
     Dates: start: 20050901

REACTIONS (13)
  - PAIN [None]
  - INJURY [None]
  - ARTERIOVENOUS FISTULA THROMBOSIS [None]
  - CARTILAGE INJURY [None]
  - MIGRAINE [None]
  - OSTEONECROSIS [None]
  - FEMOROACETABULAR IMPINGEMENT [None]
  - ANHEDONIA [None]
  - FEAR [None]
  - CHOLECYSTECTOMY [None]
  - EMOTIONAL DISTRESS [None]
  - PSYCHOLOGICAL TRAUMA [None]
  - ANXIETY [None]
